FAERS Safety Report 24078542 (Version 2)
Quarter: 2024Q3

REPORT INFORMATION
  Report Type: Spontaneous
  Country: US (occurrence: US)
  Receive Date: 20240711
  Receipt Date: 20240807
  Transmission Date: 20241017
  Serious: No
  Sender: PL DEVELOPMENTS
  Company Number: US-P+L Developments of Newyork Corporation-2159041

PATIENT
  Sex: Female

DRUGS (1)
  1. DOCOSANOL [Suspect]
     Active Substance: DOCOSANOL
     Indication: Product used for unknown indication
     Route: 065

REACTIONS (2)
  - Product packaging difficult to open [Unknown]
  - Product package associated injury [Unknown]
